FAERS Safety Report 20627922 (Version 1)
Quarter: 2022Q1

REPORT INFORMATION
  Report Type: Spontaneous
  Country: CN (occurrence: CN)
  Receive Date: 20220323
  Receipt Date: 20220323
  Transmission Date: 20220424
  Serious: Yes (Other)
  Sender: FDA-Public Use
  Company Number: CN-BAYER-2022A040861

PATIENT
  Age: 67 Year
  Sex: Male

DRUGS (2)
  1. NEXAVAR [Suspect]
     Active Substance: SORAFENIB
     Indication: Hepatic cancer
     Dosage: 400 MG, BID
     Route: 048
     Dates: start: 20200324, end: 202010
  2. SINTILIMAB [Concomitant]
     Active Substance: SINTILIMAB
     Indication: Immune enhancement therapy
     Dosage: 200 MG
     Dates: start: 20200626

REACTIONS (1)
  - Hepatic cancer [None]

NARRATIVE: CASE EVENT DATE: 20200801
